FAERS Safety Report 5646001-7 (Version None)
Quarter: 2008Q1

REPORT INFORMATION
  Report Type: 
  Country: None (occurrence: None)
  Receive Date: 20080227
  Receipt Date: 20080220
  Transmission Date: 20080703
  Serious: Yes (Hospitalization)
  Sender: FDA-Public Use
  Company Number: 2008SP003113

PATIENT
  Age: 57 Year
  Sex: Male
  Weight: 109.3 kg

DRUGS (14)
  1. TEMOZOLOMIDE [Suspect]
     Indication: GLIOBLASTOMA MULTIFORME
     Dosage: 165 MG;QD;PO
     Route: 048
     Dates: start: 20071128, end: 20080110
  2. TEMOZOLOMIDE [Suspect]
     Indication: GLIOBLASTOMA MULTIFORME
     Dosage: 165 MG;QD;PO
     Route: 048
     Dates: start: 20080215
  3. ZYRTEC [Concomitant]
  4. SARNA [Concomitant]
  5. MINERAL OIL [Concomitant]
  6. TEMOVATE [Concomitant]
  7. DERMA SMOOTHE [Concomitant]
  8. COUMADIN [Concomitant]
  9. XANAX [Concomitant]
  10. PROTONIX [Concomitant]
  11. EUCERIN [Concomitant]
  12. POTASSIUM CHLORIDE [Concomitant]
  13. DEXAMETHASONE TAB [Concomitant]
  14. HYDROCHLOROTHIAZIDE [Concomitant]

REACTIONS (2)
  - DEEP VEIN THROMBOSIS [None]
  - PULMONARY EMBOLISM [None]
